FAERS Safety Report 8190876-7 (Version None)
Quarter: 2012Q1

REPORT INFORMATION
  Report Type: 
  Country: None (occurrence: None)
  Receive Date: 20120307
  Receipt Date: 20120228
  Transmission Date: 20120608
  Serious: Yes (Hospitalization)
  Sender: FDA-Public Use
  Company Number: US-BAYER-2011-080809

PATIENT
  Age: 16 Year
  Sex: Female
  Weight: 95 kg

DRUGS (15)
  1. YAZ [Suspect]
     Indication: PREMENSTRUAL SYNDROME
  2. YASMIN [Suspect]
     Indication: ACNE
     Dosage: UNK
     Dates: start: 20070101, end: 20090101
  3. TRAMADOL HCL [Concomitant]
  4. PRILOSEC [Concomitant]
  5. OXYCODONE HCL AND ACETAMINOPHEN [Concomitant]
  6. ANTIBIOTICS [Concomitant]
     Dosage: UNK
     Dates: start: 20070101, end: 20100101
  7. UNCODEABLE ^UNCLASSIFIABLE^ [Concomitant]
     Indication: ASTHMA
     Dosage: UNK
     Dates: start: 20070101, end: 20100101
  8. ZYRTEC [Concomitant]
  9. FLUCONAZOLE [Concomitant]
  10. CEFPROZIL [Concomitant]
  11. IBUPROFEN [Concomitant]
  12. YAZ [Suspect]
     Indication: ACNE
     Dosage: UNK
     Dates: start: 20070101, end: 20090101
  13. YASMIN [Suspect]
     Indication: PREMENSTRUAL SYNDROME
  14. NITROFUR-C [Concomitant]
  15. VICODIN [Concomitant]

REACTIONS (6)
  - CHOLECYSTITIS [None]
  - CHOLECYSTITIS CHRONIC [None]
  - PAIN [None]
  - ANXIETY [None]
  - EMOTIONAL DISTRESS [None]
  - INJURY [None]
